FAERS Safety Report 10334706 (Version 2)
Quarter: 2014Q3

REPORT INFORMATION
  Report Type: Spontaneous
  Country: US (occurrence: None)
  Receive Date: 20140721
  Receipt Date: 20140729
  Transmission Date: 20150326
  Serious: Yes (Other)
  Sender: FDA-Public Use
  Company Number: AUR-APL-2014-07674

PATIENT
  Age: 44 Year
  Sex: Male

DRUGS (2)
  1. MARIJUANA (CANNIBIS SATIVA) [Concomitant]
  2. RIZATRIPTAN [Suspect]
     Active Substance: RIZATRIPTAN
     Indication: HEADACHE
     Dosage: APPROXIMATELY 2 DF PER WEEK, AS NECESSARY

REACTIONS (11)
  - Abdominal tenderness [None]
  - Nausea [None]
  - Protein C decreased [None]
  - Abdominal pain [None]
  - Prothrombin time prolonged [None]
  - Renal infarct [None]
  - Activated partial thromboplastin time prolonged [None]
  - Dehydration [None]
  - Red blood cell sedimentation rate increased [None]
  - Vomiting [None]
  - Protein S decreased [None]
